FAERS Safety Report 8068323-5 (Version None)
Quarter: 2012Q1

REPORT INFORMATION
  Report Type: 
  Country: None (occurrence: None)
  Receive Date: 20120124
  Receipt Date: 20111013
  Transmission Date: 20120608
  Serious: No
  Sender: FDA-Public Use
  Company Number: US-AMGEN-USASP2011053061

PATIENT
  Age: 76 Year
  Sex: Female

DRUGS (6)
  1. ELAVIL [Concomitant]
     Indication: NEUROPATHY PERIPHERAL
     Dosage: UNK
  2. VITAMIN D [Concomitant]
     Dosage: UNK
  3. CALCIUM WITH VITAMIN D3 [Concomitant]
     Dosage: UNK
  4. MATURE MULTIVITAMINS [Concomitant]
     Dosage: UNK
  5. ASCORBIC ACID [Concomitant]
     Dosage: UNK
  6. PROLIA [Suspect]
     Indication: OSTEOPOROSIS POSTMENOPAUSAL
     Dosage: 60 MG, Q6MO
     Dates: start: 20110510

REACTIONS (10)
  - LOCALISED INFECTION [None]
  - CONFUSIONAL STATE [None]
  - BACK PAIN [None]
  - CERUMEN IMPACTION [None]
  - SINUSITIS [None]
  - DIZZINESS [None]
  - MALAISE [None]
  - EAR INFECTION [None]
  - TINNITUS [None]
  - VERTIGO [None]
